FAERS Safety Report 10175160 (Version 1)
Quarter: 2014Q2

REPORT INFORMATION
  Report Type: Spontaneous
  Country: US (occurrence: US)
  Receive Date: 20140515
  Receipt Date: 20140515
  Transmission Date: 20141212
  Serious: No
  Sender: FDA-Public Use
  Company Number: US-VIVUS-2014V1000044

PATIENT
  Age: 54 Year
  Sex: Female
  Weight: 84.44 kg

DRUGS (2)
  1. QSYMIA 7.5MG/46MG [Suspect]
     Indication: WEIGHT DECREASED
     Route: 048
     Dates: start: 201309, end: 201309
  2. QSYMIA 7.5MG/46MG [Suspect]
     Route: 048
     Dates: start: 201310, end: 201311

REACTIONS (6)
  - Sluggishness [Recovered/Resolved]
  - Tachyphrenia [Recovered/Resolved]
  - Weight increased [Recovered/Resolved]
  - Crying [Recovered/Resolved]
  - Depression [Recovered/Resolved]
  - Inappropriate schedule of drug administration [Recovered/Resolved]
